FAERS Safety Report 15464052 (Version 2)
Quarter: 2018Q4

REPORT INFORMATION
  Report Type: Report from Study
  Country: US (occurrence: US)
  Receive Date: 20181004
  Receipt Date: 20181206
  Transmission Date: 20190204
  Serious: Yes (Other)
  Sender: FDA-Public Use
  Company Number: US-JNJFOC-20181004454

PATIENT
  Age: 62 Year
  Sex: Female

DRUGS (21)
  1. VITAMIN D [Concomitant]
     Active Substance: CHOLECALCIFEROL
  2. RETINOL [Concomitant]
     Active Substance: RETINOL
  3. VITAMIN B COMPLEX [Concomitant]
     Active Substance: CYANOCOBALAMIN\DEXPANTHENOL\NIACINAMIDE\PYRIDOXINE HYDROCHLORIDE\RIBOFLAVIN 5^-PHOSPHATE SODIUM\THIAMINE HYDROCHLORIDE\VITAMIN B COMPLEX
  4. RIBOFLAVIN [Concomitant]
     Active Substance: RIBOFLAVIN
  5. CYANOCOBALAMIN. [Concomitant]
     Active Substance: CYANOCOBALAMIN
  6. INFLUENZA VACCINE [Concomitant]
     Active Substance: INFLUENZA VIRUS VACCINE
  7. ZYRTEC [Concomitant]
     Active Substance: CETIRIZINE HYDROCHLORIDE
     Indication: SEASONAL ALLERGY
  8. VITAMIN C [Concomitant]
     Active Substance: ASCORBIC ACID
  9. NEURONTIN [Concomitant]
     Active Substance: GABAPENTIN
     Indication: NEUROPATHY PERIPHERAL
  10. CARVEDILOL. [Concomitant]
     Active Substance: CARVEDILOL
  11. FOLIC ACID W/MECOBALAMIN [Concomitant]
  12. ACYCLOVIR. [Concomitant]
     Active Substance: ACYCLOVIR
  13. ESSENTIAL OILS NOS [Concomitant]
     Indication: HYPOAESTHESIA
  14. VITAMIN E                          /00110501/ [Concomitant]
     Active Substance: TOCOPHEROL
  15. NIACIN. [Concomitant]
     Active Substance: NIACIN
  16. IMBRUVICA [Suspect]
     Active Substance: IBRUTINIB
     Indication: CHRONIC LYMPHOCYTIC LEUKAEMIA
     Route: 048
     Dates: start: 20180401
  17. LEVOBID [Concomitant]
     Indication: IRRITABLE BOWEL SYNDROME
  18. PENTAMIDINE [Concomitant]
     Active Substance: PENTAMIDINE
  19. ESSENTIAL OILS NOS [Concomitant]
     Indication: BURNING SENSATION
  20. NORVASC [Concomitant]
     Active Substance: AMLODIPINE BESYLATE
     Indication: HYPERTENSION
  21. DIOVAN [Concomitant]
     Active Substance: VALSARTAN

REACTIONS (1)
  - Cystitis [Recovered/Resolved]

NARRATIVE: CASE EVENT DATE: 20180915
